FAERS Safety Report 25843854 (Version 3)
Quarter: 2025Q4

REPORT INFORMATION
  Report Type: Spontaneous
  Country: US (occurrence: US)
  Receive Date: 20250925
  Receipt Date: 20251030
  Transmission Date: 20260117
  Serious: Yes (Other)
  Sender: ALEXION PHARMACEUTICALS
  Company Number: 202507USA014426US

PATIENT
  Sex: Female

DRUGS (1)
  1. SOLIRIS [Suspect]
     Active Substance: ECULIZUMAB
     Route: 065

REACTIONS (20)
  - Multiple organ dysfunction syndrome [Unknown]
  - Immune thrombocytopenia [Unknown]
  - Thrombotic thrombocytopenic purpura [Unknown]
  - Hepatic haemorrhage [Unknown]
  - Atypical haemolytic uraemic syndrome [Unknown]
  - Chronic kidney disease [Unknown]
  - Lupus-like syndrome [Unknown]
  - Ehlers-Danlos syndrome [Unknown]
  - Weight increased [Unknown]
  - Alopecia [Unknown]
  - Madarosis [Unknown]
  - Contusion [Unknown]
  - Pain in extremity [Unknown]
  - Hypoaesthesia [Unknown]
  - May-Thurner syndrome [Unknown]
  - Muscle spasms [Not Recovered/Not Resolved]
  - Headache [Unknown]
  - Nausea [Unknown]
  - Hypersensitivity [Unknown]
  - Gait disturbance [Unknown]
